FAERS Safety Report 24449210 (Version 1)
Quarter: 2024Q4

REPORT INFORMATION
  Report Type: Spontaneous
  Country: LU (occurrence: LU)
  Receive Date: 20241017
  Receipt Date: 20241017
  Transmission Date: 20250115
  Serious: Yes (Hospitalization, Other)
  Sender: CELLTRION
  Company Number: None

PATIENT

DRUGS (3)
  1. INFLIXIMAB [Suspect]
     Active Substance: INFLIXIMAB
     Indication: Polyarthritis
     Dosage: 1 DF, 1 TOTAL
     Route: 058
     Dates: start: 20230630, end: 20230630
  2. CRESTOR [Concomitant]
     Active Substance: ROSUVASTATIN CALCIUM
     Indication: Dyslipidaemia
     Dosage: 20 MG, EVERY 1 DAY
  3. UMECLIDINIUM BROMIDE\VILANTEROL TRIFENATATE [Concomitant]
     Active Substance: UMECLIDINIUM BROMIDE\VILANTEROL TRIFENATATE
     Indication: Chronic obstructive pulmonary disease
     Dosage: 1 DF, EVERY 1 DAY

REACTIONS (2)
  - Injection site necrosis [Recovered/Resolved with Sequelae]
  - Injection site haematoma [Recovered/Resolved with Sequelae]

NARRATIVE: CASE EVENT DATE: 20230630
